FAERS Safety Report 17494842 (Version 4)
Quarter: 2020Q2

REPORT INFORMATION
  Report Type: Spontaneous
  Country: US (occurrence: US)
  Receive Date: 20200303
  Receipt Date: 20200625
  Transmission Date: 20200713
  Serious: Yes (Other)
  Sender: FDA-Public Use
  Company Number: US-AMNEAL PHARMACEUTICALS-2019-AMRX-02926

PATIENT
  Age: 78 Year
  Sex: Female
  Weight: 65 kg

DRUGS (1)
  1. RYTARY [Suspect]
     Active Substance: CARBIDOPA\LEVODOPA
     Indication: PRODUCT USED FOR UNKNOWN INDICATION
     Dosage: 1 CAPSULES, TID
     Route: 048

REACTIONS (4)
  - Vaginal lesion [Unknown]
  - Weight increased [Unknown]
  - Increased appetite [Unknown]
  - Bladder prolapse [Unknown]

NARRATIVE: CASE EVENT DATE: 201911
